FAERS Safety Report 4978221-9 (Version None)
Quarter: 2006Q2

REPORT INFORMATION
  Report Type: 
  Country: None (occurrence: None)
  Receive Date: 20060420
  Receipt Date: 20060410
  Transmission Date: 20061013
  Serious: Yes (Hospitalization)
  Sender: FDA-Public Use
  Company Number: US-KINGPHARMUSA00001-K200600450

PATIENT
  Age: 92 Year
  Sex: Male

DRUGS (4)
  1. ALTACE [Suspect]
     Dosage: 1.25 MG, QD
     Route: 048
     Dates: end: 20060216
  2. ALDACTONE [Suspect]
     Dosage: 75 MG, QD
     Route: 048
     Dates: end: 20060216
  3. KARDEGIC /FRA/ [Concomitant]
     Dosage: 75 MG, UNK
     Route: 048
     Dates: end: 20060220
  4. FUROSEMIDE [Concomitant]
     Dosage: UNK, UNK

REACTIONS (4)
  - DRUG INTERACTION [None]
  - GENERAL PHYSICAL HEALTH DETERIORATION [None]
  - HYPERKALAEMIA [None]
  - RENAL FAILURE ACUTE [None]
